FAERS Safety Report 4498146-5 (Version None)
Quarter: 2004Q4

REPORT INFORMATION
  Report Type: 
  Country: None (occurrence: None)
  Receive Date: 20041110
  Receipt Date: 20041104
  Transmission Date: 20050328
  Serious: Yes (Life-Threatening, Hospitalization, Disabling, Other)
  Sender: FDA-Public Use
  Company Number: GB-MERCK-0411GBR00072

PATIENT
  Age: 47 Year
  Sex: Male
  Weight: 60 kg

DRUGS (10)
  1. ZOCOR [Suspect]
     Indication: HYPERCHOLESTEROLAEMIA
     Route: 048
     Dates: start: 20020101, end: 20041015
  2. AMIODARONE [Concomitant]
     Indication: ATRIAL FIBRILLATION
     Route: 065
     Dates: start: 20040920, end: 20041015
  3. MOXONIDINE [Concomitant]
     Route: 065
  4. ASPIRIN [Concomitant]
     Route: 065
  5. LOSARTAN POTASSIUM [Concomitant]
     Route: 065
  6. ATENOLOL [Concomitant]
     Route: 065
  7. SEVELAMER HYDROCHLORIDE [Concomitant]
     Route: 065
  8. ALFACALCIDOL [Concomitant]
     Route: 065
  9. CALCIUM CARBONATE [Concomitant]
     Route: 065
  10. OMEPRAZOLE [Concomitant]
     Route: 065

REACTIONS (1)
  - MYOSITIS [None]
